FAERS Safety Report 9070652 (Version 1)
Quarter: 2013Q1

REPORT INFORMATION
  Report Type: Spontaneous
  Country: US (occurrence: US)
  Receive Date: 20130206
  Receipt Date: 20130206
  Transmission Date: 20140127
  Serious: No
  Sender: FDA-Public Use
  Company Number: US-ALLERGAN-1204492US

PATIENT
  Age: 68 Year
  Sex: Female

DRUGS (7)
  1. RESTASIS? [Suspect]
     Indication: DRY EYE
     Dosage: 2 GTT, BID
     Route: 047
     Dates: start: 201202
  2. REFRESH OPTIVE [Concomitant]
     Indication: DRY EYE
     Dosage: UNK
     Route: 047
     Dates: start: 201106
  3. SYNTHROID [Concomitant]
     Indication: HYPOTHYROIDISM
     Dosage: UNK
     Route: 048
  4. NEURONTIN [Concomitant]
     Indication: PAIN
     Dosage: UNK
  5. VALCYCLOVIR [Concomitant]
     Indication: HERPES VIRUS INFECTION
     Dosage: UNK
  6. PRAVASTATIN [Concomitant]
     Indication: BLOOD CHOLESTEROL
     Dosage: UNK
  7. METROGEL [Concomitant]
     Indication: ROSACEA
     Dosage: UNK
     Route: 061

REACTIONS (3)
  - Burning sensation [Recovering/Resolving]
  - Instillation site pain [Recovering/Resolving]
  - Scleral hyperaemia [Recovering/Resolving]
